FAERS Safety Report 18009196 (Version 1)
Quarter: 2020Q3

REPORT INFORMATION
  Report Type: Spontaneous
  Country: US (occurrence: US)
  Receive Date: 20200710
  Receipt Date: 20200710
  Transmission Date: 20201103
  Serious: Yes (Other)
  Sender: FDA-Public Use
  Company Number: US-SAOL THERAPEUTICS-2020SAO00062

PATIENT
  Sex: Female

DRUGS (2)
  1. LIORESAL [Suspect]
     Active Substance: BACLOFEN
     Dosage: 625 UNK
     Route: 037
  2. LIORESAL [Suspect]
     Active Substance: BACLOFEN
     Dosage: 715.5 ?G, \DAY
     Route: 037

REACTIONS (4)
  - Paralysis [Unknown]
  - Therapeutic response changed [Unknown]
  - Drug withdrawal syndrome [Unknown]
  - Choking [Unknown]

NARRATIVE: CASE EVENT DATE: 2018
